FAERS Safety Report 4634950-8 (Version None)
Quarter: 2005Q2

REPORT INFORMATION
  Report Type: 
  Country: None (occurrence: None)
  Receive Date: 20050411
  Receipt Date: 20050401
  Transmission Date: 20051028
  Serious: Yes (Hospitalization, Other)
  Sender: FDA-Public Use
  Company Number: 2005036927

PATIENT
  Age: 77 Year
  Sex: Female
  Weight: 69.4003 kg

DRUGS (12)
  1. BEXTRA [Suspect]
     Indication: PAIN
     Dosage: 10 MG (10 MG,  1 IN 1 D), ORAL; 20 M G (20 MG, 1 IN 1 D), ORAL
     Route: 048
     Dates: start: 20040601, end: 20050118
  2. BEXTRA [Suspect]
     Indication: PARAESTHESIA
     Dosage: 10 MG (10 MG,  1 IN 1 D), ORAL; 20 M G (20 MG, 1 IN 1 D), ORAL
     Route: 048
     Dates: start: 20040601, end: 20050118
  3. BEXTRA [Suspect]
     Indication: PAIN
     Dosage: 10 MG (10 MG,  1 IN 1 D), ORAL; 20 M G (20 MG, 1 IN 1 D), ORAL
     Route: 048
     Dates: start: 20050119
  4. BEXTRA [Suspect]
     Indication: PARAESTHESIA
     Dosage: 10 MG (10 MG,  1 IN 1 D), ORAL; 20 M G (20 MG, 1 IN 1 D), ORAL
     Route: 048
     Dates: start: 20050119
  5. CELEBREX [Suspect]
     Indication: BUTTOCK PAIN
     Dosage: 200 MG (200 MG, 1IN 1 D), ORAL
     Route: 048
     Dates: start: 20020101, end: 20030801
  6. CELEBREX [Suspect]
     Indication: CERVICAL VERTEBRA INJURY
     Dosage: 200 MG (200 MG, 1IN 1 D), ORAL
     Route: 048
     Dates: start: 20020101, end: 20030801
  7. CELEBREX [Suspect]
     Indication: MUSCLE SPASMS
     Dosage: 200 MG (200 MG, 1IN 1 D), ORAL
     Route: 048
     Dates: start: 20020101, end: 20030801
  8. CELEBREX [Suspect]
     Indication: OSTEOARTHRITIS
     Dosage: 200 MG (200 MG, 1IN 1 D), ORAL
     Route: 048
     Dates: start: 20020101, end: 20030801
  9. CELEBREX [Suspect]
     Indication: PAIN IN EXTREMITY
     Dosage: 200 MG (200 MG, 1IN 1 D), ORAL
     Route: 048
     Dates: start: 20020101, end: 20030801
  10. CELEBREX [Suspect]
     Indication: SPINAL COLUMN STENOSIS
     Dosage: 200 MG (200 MG, 1IN 1 D), ORAL
     Route: 048
     Dates: start: 20020101, end: 20030801
  11. OLMESARTAN MEDOXOMIL (OLMESARTAN MEDOXOMIL) [Concomitant]
  12. ACETYLSALICYLIC ACID (ACETYLCALICYLIC ACID) [Concomitant]

REACTIONS (13)
  - ARTHRALGIA [None]
  - BASAL CELL CARCINOMA [None]
  - DRUG INEFFECTIVE [None]
  - HYPOAESTHESIA [None]
  - INTERVERTEBRAL DISC PROTRUSION [None]
  - NERVE COMPRESSION [None]
  - NEUROPATHY [None]
  - OSTEOARTHRITIS [None]
  - PAIN IN EXTREMITY [None]
  - PARAESTHESIA [None]
  - SPINAL COLUMN STENOSIS [None]
  - SPINAL DISORDER [None]
  - SPONDYLITIS [None]
